FAERS Safety Report 5519799-6 (Version None)
Quarter: 2007Q4

REPORT INFORMATION
  Report Type: 
  Country: None (occurrence: None)
  Receive Date: 20071116
  Receipt Date: 20070820
  Transmission Date: 20080405
  Serious: No
  Sender: FDA-Public Use
  Company Number: A0674743A

PATIENT
  Age: 53 Year
  Sex: Male

DRUGS (2)
  1. COREG CR [Suspect]
     Route: 048
     Dates: start: 20060101
  2. NO CONCURRENT MEDICATIONS [Concomitant]

REACTIONS (1)
  - MALAISE [None]
